FAERS Safety Report 16336699 (Version 1)
Quarter: 2019Q2

REPORT INFORMATION
  Report Type: Spontaneous
  Country: US (occurrence: US)
  Receive Date: 20190521
  Receipt Date: 20190521
  Transmission Date: 20190711
  Serious: No
  Sender: FDA-Public Use
  Company Number: US-009507513-1905USA008924

PATIENT
  Sex: Male

DRUGS (1)
  1. KEYTRUDA [Suspect]
     Active Substance: PEMBROLIZUMAB
     Indication: BONE CANCER
     Dosage: ONE TREATMENT

REACTIONS (4)
  - Product use in unapproved indication [Unknown]
  - Arthralgia [Unknown]
  - Back pain [Unknown]
  - Diarrhoea [Unknown]
